FAERS Safety Report 11200313 (Version 3)
Quarter: 2015Q3

REPORT INFORMATION
  Report Type: Spontaneous
  Country: IT (occurrence: IT)
  Receive Date: 20150618
  Receipt Date: 20150819
  Transmission Date: 20151125
  Serious: Yes (Hospitalization, Other)
  Sender: FDA-Public Use
  Company Number: IT-GILEAD-2015-0158146

PATIENT
  Age: 76 Year
  Sex: Female

DRUGS (8)
  1. SOVALDI [Suspect]
     Active Substance: SOFOSBUVIR
     Indication: CHRONIC HEPATITIS C
     Dosage: 400 MG, QD
     Route: 048
     Dates: start: 20150421, end: 20150607
  2. COPEGUS [Suspect]
     Active Substance: RIBAVIRIN
     Indication: CRYOGLOBULINAEMIA
  3. COPEGUS [Suspect]
     Active Substance: RIBAVIRIN
     Indication: HEPATIC CIRRHOSIS
  4. COPEGUS [Suspect]
     Active Substance: RIBAVIRIN
     Indication: CHRONIC HEPATITIS C
     Dosage: 800 MG, QD
     Route: 048
     Dates: start: 20150421, end: 20150607
  5. OMEPRAZOLE. [Concomitant]
     Active Substance: OMEPRAZOLE
     Indication: GASTROOESOPHAGEAL REFLUX DISEASE
     Dosage: 20 MG, UNK
     Route: 048
  6. SOVALDI [Suspect]
     Active Substance: SOFOSBUVIR
     Indication: HEPATIC CIRRHOSIS
     Dosage: 400 MG, ONCE
     Route: 048
     Dates: start: 20150608
  7. SOVALDI [Suspect]
     Active Substance: SOFOSBUVIR
     Indication: CRYOGLOBULINAEMIA
  8. AMLODIPINE [Concomitant]
     Active Substance: AMLODIPINE BESYLATE
     Indication: HYPERTENSION
     Dosage: 5 MG, QD
     Route: 048

REACTIONS (6)
  - Diarrhoea [Recovering/Resolving]
  - Nausea [Recovering/Resolving]
  - Hyperammonaemia [Recovering/Resolving]
  - Femoral hernia strangulated [Recovering/Resolving]
  - Hepatic encephalopathy [Recovering/Resolving]
  - Vomiting [Recovering/Resolving]

NARRATIVE: CASE EVENT DATE: 20150606
